FAERS Safety Report 9049940 (Version 2)
Quarter: 2013Q3

REPORT INFORMATION
  Report Type: Report from Study
  Country: US (occurrence: US)
  Receive Date: 20130205
  Receipt Date: 20130712
  Transmission Date: 20140515
  Serious: Yes (Hospitalization)
  Sender: FDA-Public Use
  Company Number: US-ROCHE-590444

PATIENT
  Age: 76 Year
  Sex: Female
  Weight: 82.9 kg

DRUGS (14)
  1. TRASTUZUMAB [Suspect]
     Indication: HER-2 POSITIVE BREAST CANCER
     Dosage: DOSEFORM: VIAL
     Route: 042
     Dates: start: 20080917, end: 20080917
  2. TRASTUZUMAB [Suspect]
     Route: 042
  3. CARBOPLATIN [Suspect]
     Indication: HER-2 POSITIVE BREAST CANCER
     Dosage: DOSEFORM: VIAL
     Route: 042
     Dates: start: 20080917, end: 20080917
  4. CARBOPLATIN [Suspect]
     Route: 042
  5. DOCETAXEL [Suspect]
     Indication: HER-2 POSITIVE BREAST CANCER
     Dosage: DOSEFORM: VIAL
     Route: 042
     Dates: start: 20080917, end: 20080917
  6. DOCETAXEL [Suspect]
     Route: 042
  7. CYMBALTA [Concomitant]
     Route: 065
  8. RANTAC [Concomitant]
     Route: 065
  9. DIOVAN [Concomitant]
     Dosage: TDD: 160/12.5 MG
     Route: 065
  10. TOPROL [Concomitant]
     Indication: HYPERTENSION
     Route: 065
  11. LEXAPRO [Concomitant]
     Route: 065
  12. ZOFRAN [Concomitant]
     Route: 065
  13. EMEND [Concomitant]
     Dosage: TDD: PAC
     Route: 065
  14. LEVAQUIN [Concomitant]
     Route: 065
     Dates: start: 20081003, end: 20081013

REACTIONS (1)
  - Jugular vein thrombosis [Recovered/Resolved]
